FAERS Safety Report 10244397 (Version 1)
Quarter: 2014Q2

REPORT INFORMATION
  Report Type: Spontaneous
  Country: FR (occurrence: FR)
  Receive Date: 20140618
  Receipt Date: 20140618
  Transmission Date: 20141212
  Serious: Yes (Hospitalization)
  Sender: FDA-Public Use
  Company Number: FR-PERRIGO-14FR005960

PATIENT
  Age: 80 Year
  Sex: Female

DRUGS (5)
  1. NAPROXEN RX 250 MG 121 [Suspect]
     Indication: ARTHRALGIA
     Dosage: 750 MG/DAY
     Route: 048
  2. NAPROXEN RX 250 MG 121 [Suspect]
     Dosage: UNK, INTERMITTENTLY
     Route: 048
  3. CORTICOSTEROIDS, DERMATOLOGICAL PREPARATIONS [Concomitant]
     Indication: PRODUCT USED FOR UNKNOWN INDICATION
     Dosage: UNK, UNK
     Route: 065
  4. BILASTINE [Concomitant]
     Indication: PRODUCT USED FOR UNKNOWN INDICATION
     Dosage: UNK, UNK
     Route: 065
  5. AMOXICILLIN W/CLAVULANIC ACID [Concomitant]
     Indication: PRODUCT USED FOR UNKNOWN INDICATION
     Dosage: UNK, UNK
     Route: 065

REACTIONS (1)
  - Pulmonary eosinophilia [Recovered/Resolved]
